FAERS Safety Report 8485853-2 (Version None)
Quarter: 2012Q3

REPORT INFORMATION
  Report Type: 
  Country: None (occurrence: None)
  Receive Date: 20120703
  Receipt Date: 20120627
  Transmission Date: 20120928
  Serious: Yes (Hospitalization, Other)
  Sender: FDA-Public Use
  Company Number: PHHY2012JP035136

PATIENT
  Age: 77 Year
  Sex: Male

DRUGS (3)
  1. SENNARIDE [Suspect]
  2. CIPROFLOXACIN HYDROCHLORIDE [Suspect]
  3. ENALAPRIL MALEATE [Suspect]

REACTIONS (4)
  - PIGMENTATION DISORDER [None]
  - PETECHIAE [None]
  - SCHAMBERG'S DISEASE [None]
  - RASH [None]
